FAERS Safety Report 14854127 (Version 1)
Quarter: 2018Q2

REPORT INFORMATION
  Report Type: Spontaneous
  Country: DK (occurrence: DK)
  Receive Date: 20180507
  Receipt Date: 20180507
  Transmission Date: 20180711
  Serious: Yes (Other)
  Sender: FDA-Public Use
  Company Number: DK-009507513-1805DNK000901

PATIENT
  Age: 75 Year
  Sex: Female

DRUGS (5)
  1. ALENDRONATE SODIUM. [Suspect]
     Active Substance: ALENDRONATE SODIUM
     Dosage: STRENGTH: 70 MG
     Route: 048
     Dates: start: 201307, end: 20160308
  2. FORSTEO [Concomitant]
     Active Substance: TERIPARATIDE
     Indication: OSTEOPOROSIS
     Dosage: STRENGTH: 20 MICROGRAMS/80 MICROLITERS
     Route: 058
  3. DIDRONATE [Suspect]
     Active Substance: ETIDRONATE DISODIUM
     Indication: OSTEOPOROSIS
     Dosage: DOSAGE UNKNOWN
  4. ALENDRONATE SODIUM. [Suspect]
     Active Substance: ALENDRONATE SODIUM
     Indication: OSTEOPOROSIS
     Dosage: UNK
     Route: 048
     Dates: end: 2008
  5. PROLIA [Suspect]
     Active Substance: DENOSUMAB
     Indication: OSTEOPOROSIS
     Dosage: STRENGTH: 60 MG
     Route: 058
     Dates: start: 20160308, end: 201709

REACTIONS (3)
  - Exposed bone in jaw [Recovered/Resolved]
  - Osteonecrosis of jaw [Recovered/Resolved]
  - Impaired healing [Recovered/Resolved]

NARRATIVE: CASE EVENT DATE: 2017
